FAERS Safety Report 9219139 (Version 3)
Quarter: 2013Q4

REPORT INFORMATION
  Report Type: Spontaneous
  Country: US (occurrence: US)
  Receive Date: 20130409
  Receipt Date: 20131030
  Transmission Date: 20140711
  Serious: Yes (Life-Threatening, Hospitalization, Disabling)
  Sender: FDA-Public Use
  Company Number: US-BAYER-2013-042654

PATIENT
  Age: 27 Year
  Sex: Female
  Weight: 74.83 kg

DRUGS (8)
  1. YAZ [Suspect]
     Indication: CONTRACEPTION
     Dosage: UNK
     Dates: start: 200609, end: 200910
  2. YASMIN [Suspect]
     Indication: CONTRACEPTION
     Dosage: UNK
     Dates: start: 20060917, end: 20080616
  3. OCELLA [Suspect]
     Indication: CONTRACEPTION
     Dosage: UNK
     Dates: start: 20080721, end: 20090824
  4. DECADRON [Concomitant]
  5. NOVOLOG [Concomitant]
  6. COLACE [Concomitant]
  7. ZOCOR [Concomitant]
  8. PEPCID [Concomitant]

REACTIONS (18)
  - Cerebrovascular accident [None]
  - Pelvic venous thrombosis [None]
  - Cerebral ischaemia [None]
  - Paradoxical embolism [None]
  - Injury [None]
  - Pain [None]
  - Anxiety [None]
  - Anhedonia [None]
  - Fear of disease [None]
  - Vomiting [None]
  - VIIth nerve paralysis [None]
  - Hemiparesis [None]
  - Movement disorder [None]
  - Emotional distress [None]
  - Hemiplegia [None]
  - Memory impairment [None]
  - Speech disorder [None]
  - Brain oedema [None]
